FAERS Safety Report 21192700 (Version 1)
Quarter: 2022Q3

REPORT INFORMATION
  Report Type: Spontaneous
  Country: US (occurrence: None)
  Receive Date: 20220810
  Receipt Date: 20220810
  Transmission Date: 20221026
  Serious: Yes (Other)
  Sender: FDA-Public Use
  Company Number: 2022A276858

PATIENT
  Sex: Female
  Weight: 31.2 kg

DRUGS (11)
  1. KOSELUGO [Suspect]
     Active Substance: SELUMETINIB
     Indication: Neurofibromatosis
     Dosage: 10.0MG UNKNOWN
     Route: 048
  2. CIPRODEX [Concomitant]
     Active Substance: CIPROFLOXACIN HYDROCHLORIDE\DEXAMETHASONE
  3. CLINDAMYCIN [Concomitant]
     Active Substance: CLINDAMYCIN
  4. DULERA [Concomitant]
     Active Substance: FORMOTEROL FUMARATE DIHYDRATE\MOMETASONE FUROATE
  5. GABAPENTIN [Concomitant]
     Active Substance: GABAPENTIN
  6. LOPERAMIDE [Concomitant]
     Active Substance: LOPERAMIDE
  7. ONDANSETRON [Concomitant]
     Active Substance: ONDANSETRON
  8. OXYCODONE [Concomitant]
     Active Substance: OXYCODONE
  9. PROAIR HFA [Concomitant]
     Active Substance: ALBUTEROL SULFATE
  10. SERTRALINE [Concomitant]
     Active Substance: SERTRALINE HYDROCHLORIDE
  11. VTAMIN D [Concomitant]

REACTIONS (1)
  - Hepatic enzyme increased [Unknown]
